FAERS Safety Report 9282478 (Version 1)
Quarter: 2013Q2

REPORT INFORMATION
  Report Type: Spontaneous
  Country: US (occurrence: None)
  Receive Date: 20130509
  Receipt Date: 20130509
  Transmission Date: 20140414
  Serious: Yes (Other)
  Sender: FDA-Public Use
  Company Number: None

PATIENT
  Age: 17 Year
  Sex: Female
  Weight: 47.63 kg

DRUGS (1)
  1. NUVA RING MERCK [Suspect]
     Route: 067
     Dates: start: 20121015, end: 20121114

REACTIONS (2)
  - Thrombosis [None]
  - Drug ineffective [None]
